FAERS Safety Report 6226731-9 (Version None)
Quarter: 2009Q2

REPORT INFORMATION
  Report Type: 
  Country: None (occurrence: None)
  Receive Date: 20090612
  Receipt Date: 20090604
  Transmission Date: 20091009
  Serious: Yes (Hospitalization)
  Sender: FDA-Public Use
  Company Number: PL-ROCHE-617741

PATIENT
  Sex: Male
  Weight: 84 kg

DRUGS (17)
  1. METHOXY POLYETHYLENE GLYCOL-EPOETIN BETA [Suspect]
     Dosage: DATE OF LAST DOSE PRIOR TO SAE: 02 FEBRUARY 2009
     Route: 058
     Dates: start: 20081013
  2. DARBEPOETIN ALFA [Suspect]
     Dosage: THE PATIENT RECEIVED DARBEPOETIN ALFA DURING SCREENING PHASE.
     Route: 058
  3. ENALAPRIL MALEATE [Concomitant]
     Dates: start: 20060404
  4. AMOXICILLIN [Concomitant]
     Dates: start: 20030101
  5. DOXORUBICIN HCL [Concomitant]
     Dates: start: 20061101
  6. ACETYLSALICYLIC ACID SRT [Concomitant]
     Dosage: TDD REPORTED AS 75.
     Dates: start: 19770101
  7. ACETYLSALICYLIC ACID SRT [Concomitant]
     Dosage: TDD REPORTED AS 150.
     Dates: start: 19970101
  8. VINPOCETINE [Concomitant]
     Dosage: TDD REPORTED AS 3*5 MG.
     Dates: start: 20030101
  9. VINPOCETINE [Concomitant]
     Dates: start: 20030101
  10. ALLOPURINOL [Concomitant]
     Dates: start: 20040416
  11. GLICLAZIDE [Concomitant]
     Dates: start: 20020101
  12. FUROSEMIDUM [Concomitant]
     Dates: start: 20060804
  13. FUROSEMIDUM [Concomitant]
     Dates: start: 20080804
  14. SIMVASTEROL [Concomitant]
     Dates: start: 20030101
  15. PIRACETAM [Concomitant]
     Dates: start: 20041203
  16. NITRATE NOS [Concomitant]
     Dosage: DRUG NAME REPORTED AS: ^MONONITRATE^.
     Dates: start: 20060804
  17. AMLODIPINE [Concomitant]
     Dosage: DRUG NAME REPORTED AS ^AMLODYPIN^.
     Dates: start: 20070101

REACTIONS (1)
  - RENAL IMPAIRMENT [None]
